FAERS Safety Report 5865986-7 (Version None)
Quarter: 2008Q3

REPORT INFORMATION
  Report Type: 
  Country: None (occurrence: None)
  Receive Date: 20080829
  Receipt Date: 20080818
  Transmission Date: 20090109
  Serious: Yes (Other)
  Sender: FDA-Public Use
  Company Number: US-PFIZER INC-2008057914

PATIENT
  Sex: Female
  Weight: 99.8 kg

DRUGS (9)
  1. DEPO-MEDROL [Suspect]
     Indication: BACK PAIN
     Route: 008
  2. DEPO-MEDROL [Suspect]
     Indication: SPINAL OSTEOARTHRITIS
  3. DYAZIDE [Concomitant]
  4. VALSARTAN [Concomitant]
  5. SYNTHROID [Concomitant]
  6. KLOR-CON [Concomitant]
  7. LIPITOR [Concomitant]
  8. ACTONEL [Concomitant]
  9. ACETYLSALICYLIC ACID SRT [Concomitant]

REACTIONS (7)
  - BLOOD PRESSURE DECREASED [None]
  - DYSPNOEA [None]
  - HEADACHE [None]
  - HYPERSENSITIVITY [None]
  - NAUSEA [None]
  - RASH [None]
  - URTICARIA [None]
